FAERS Safety Report 8106942-8 (Version None)
Quarter: 2011Q4

REPORT INFORMATION
  Report Type: 
  Country: None (occurrence: None)
  Receive Date: 20111227
  Receipt Date: 20111107
  Transmission Date: 20120403
  Serious: No
  Sender: FDA-Public Use
  Company Number: PHEH2011US009383

PATIENT
  Age: 52 Year
  Sex: Male
  Weight: 79.4 kg

DRUGS (3)
  1. GILENYA [Suspect]
     Indication: MULTIPLE SCLEROSIS
     Dosage: 0.5 MG, QD, ORAL
     Route: 048
     Dates: start: 20111017
  2. AVONEX [Concomitant]
  3. WELLBUTRIN [Concomitant]

REACTIONS (4)
  - ANXIETY [None]
  - ANGER [None]
  - AGITATION [None]
  - DEPRESSED MOOD [None]
